FAERS Safety Report 5139923-7 (Version None)
Quarter: 2006Q4

REPORT INFORMATION
  Report Type: 
  Country: None (occurrence: None)
  Receive Date: 20061031
  Receipt Date: 20060306
  Transmission Date: 20070319
  Serious: Yes (Hospitalization)
  Sender: FDA-Public Use
  Company Number: US-ELI_LILLY_AND_COMPANY-US200605005390

PATIENT
  Age: 55 Year
  Sex: Male
  Weight: 99.773 kg

DRUGS (10)
  1. ZYPREXA [Suspect]
     Indication: POST-TRAUMATIC STRESS DISORDER
     Dosage: 15 MG, UNK
     Dates: start: 20010201, end: 20061001
  2. HALDOL [Concomitant]
     Dates: start: 20010801
  3. LAMOTRIGINE [Concomitant]
     Dates: start: 20060301
  4. WELLBUTRIN [Concomitant]
     Dates: start: 20000301
  5. CELEXA [Concomitant]
     Dates: start: 20000201
  6. SINEQUAN [Concomitant]
     Dates: start: 20030301
  7. SYMBYAX [Concomitant]
     Dates: start: 20010201
  8. TRAZODONE HCL [Concomitant]
     Dates: start: 20000201
  9. METHYLPHENIDATE HCL [Concomitant]
     Dates: start: 20050101, end: 20050301
  10. TENORMIN                                /NEZ/ [Concomitant]
     Dates: start: 19980901

REACTIONS (7)
  - BLOOD CHOLESTEROL INCREASED [None]
  - BLOOD TRIGLYCERIDES INCREASED [None]
  - CARDIAC DISORDER [None]
  - CARDIAC PACEMAKER INSERTION [None]
  - DIABETES MELLITUS [None]
  - HYPERTENSION [None]
  - METABOLIC DISORDER [None]
